FAERS Safety Report 14099822 (Version 1)
Quarter: 2017Q4

REPORT INFORMATION
  Report Type: Spontaneous
  Country: US (occurrence: US)
  Receive Date: 20171017
  Receipt Date: 20171017
  Transmission Date: 20180321
  Serious: Yes (Other)
  Sender: FDA-Public Use
  Company Number: US-INDIVIOR LIMITED-INDV-105340-2017

PATIENT
  Age: 40 Year
  Sex: Female

DRUGS (1)
  1. SUBOXONE [Suspect]
     Active Substance: BUPRENORPHINE HYDROCHLORIDE\NALOXONE HYDROCHLORIDE
     Indication: DRUG USE DISORDER
     Dosage: HALF OF AN 8 MG FILM, WAITED 3 HOURS, TOOK THE OTHER HALF
     Route: 065
     Dates: start: 20171005

REACTIONS (6)
  - Product preparation error [Unknown]
  - Drug withdrawal syndrome [Not Recovered/Not Resolved]
  - Hypersensitivity [Unknown]
  - Seizure [Recovered/Resolved]
  - Feeling hot [Unknown]
  - Condition aggravated [Not Recovered/Not Resolved]

NARRATIVE: CASE EVENT DATE: 20171005
